FAERS Safety Report 22628060 (Version 1)
Quarter: 2023Q2

REPORT INFORMATION
  Report Type: Report from Study
  Country: CA (occurrence: CA)
  Receive Date: 20230622
  Receipt Date: 20230622
  Transmission Date: 20230722
  Serious: Yes (Other)
  Sender: FDA-Public Use
  Company Number: CA-ORGANON-O2306CAN002216

PATIENT
  Age: 70 Year
  Sex: Female

DRUGS (6)
  1. ZENHALE [Suspect]
     Active Substance: FORMOTEROL FUMARATE\MOMETASONE FUROATE
     Indication: Product used for unknown indication
     Dosage: UNK (DOSAGE FORM : AEROSOL, METERED DOSE)
     Route: 065
  2. MEPOLIZUMAB [Suspect]
     Active Substance: MEPOLIZUMAB
     Indication: Asthma
     Dosage: 100 MILLIGRAM
     Route: 042
  3. RISEDRONATE SODIUM [Suspect]
     Active Substance: RISEDRONATE SODIUM
     Indication: Product used for unknown indication
     Dosage: UNK (DOSAGE FORM : NOT SPECIFIED)
     Route: 065
  4. ADVAIR HFA [Concomitant]
     Active Substance: FLUTICASONE PROPIONATE\SALMETEROL XINAFOATE
     Indication: Product used for unknown indication
     Dosage: UNK (DOSAGE FORM : NOT SPECIFIED)
     Route: 065
  5. GABAPENTIN [Concomitant]
     Active Substance: GABAPENTIN
     Indication: Product used for unknown indication
     Dosage: 100 MILLIGRAM (DOSAGE FORM : NOT SPECIFIED)
     Route: 048
  6. PANTOPRAZOLE [Concomitant]
     Active Substance: PANTOPRAZOLE
     Indication: Product used for unknown indication
     Dosage: 40 MILLIGRAM (DOSAGE FORM : NOT SPECIFIED)
     Route: 048

REACTIONS (10)
  - Abdominal pain upper [Unknown]
  - Chest pain [Unknown]
  - Condition aggravated [Unknown]
  - Gastric ulcer [Unknown]
  - Gastrointestinal disorder [Unknown]
  - Hypertension [Unknown]
  - Illness [Unknown]
  - Paraesthesia [Unknown]
  - Product dose omission issue [Unknown]
  - Stress [Unknown]
